FAERS Safety Report 23779885 (Version 1)
Quarter: 2024Q2

REPORT INFORMATION
  Report Type: Report from Study
  Country: DE (occurrence: DE)
  Receive Date: 20240424
  Receipt Date: 20240424
  Transmission Date: 20240716
  Serious: Yes (Hospitalization, Other)
  Sender: FDA-Public Use
  Company Number: DE-CELLTRION HEALTHCARE HUNGARY KFT-2022DE015081

PATIENT
  Sex: Female

DRUGS (26)
  1. SULFASALAZINE [Suspect]
     Active Substance: SULFASALAZINE
     Indication: Rheumatoid arthritis
     Dosage: 2000 MG
     Dates: start: 20190116
  2. SULFASALAZINE [Suspect]
     Active Substance: SULFASALAZINE
     Dosage: UNK
     Dates: start: 20190807
  3. TRUXIMA [Suspect]
     Active Substance: RITUXIMAB-ABBS
     Indication: Rheumatoid arthritis
     Dosage: 500 MG
     Dates: start: 201707
  4. HYDROXYCHLOROQUINE [Suspect]
     Active Substance: HYDROXYCHLOROQUINE
     Indication: Rheumatoid arthritis
     Dosage: 400 MG
     Dates: start: 20190116
  5. HYDROXYCHLOROQUINE [Suspect]
     Active Substance: HYDROXYCHLOROQUINE
     Dosage: UNK
     Dates: start: 20190807
  6. ORENCIA [Concomitant]
     Active Substance: ABATACEPT
     Indication: Rheumatoid arthritis
     Dosage: 125 MG
     Dates: start: 201611, end: 201704
  7. MABTHERA [Concomitant]
     Active Substance: RITUXIMAB
     Indication: Rheumatoid arthritis
     Dosage: 500 MG
     Dates: start: 201601
  8. METHOTREXATE [Concomitant]
     Active Substance: METHOTREXATE
     Indication: Rheumatoid arthritis
     Dosage: 10 MG
     Dates: start: 20160127
  9. METHOTREXATE [Concomitant]
     Active Substance: METHOTREXATE
     Dosage: 5 MG
     Dates: start: 20160407
  10. METHOTREXATE [Concomitant]
     Active Substance: METHOTREXATE
     Dosage: 5 MG
     Dates: start: 20160613
  11. METHOTREXATE [Concomitant]
     Active Substance: METHOTREXATE
     Dosage: 2.5 MG
     Dates: start: 20170119
  12. METHOTREXATE [Concomitant]
     Active Substance: METHOTREXATE
     Dosage: 5 MG
     Dates: start: 20170602
  13. METHOTREXATE [Concomitant]
     Active Substance: METHOTREXATE
     Dosage: 5 MG
     Dates: start: 20171204
  14. METHOTREXATE [Concomitant]
     Active Substance: METHOTREXATE
     Dosage: 5 MG
     Dates: start: 20180717
  15. METHOTREXATE [Concomitant]
     Active Substance: METHOTREXATE
     Dosage: 5 MG
     Dates: start: 20190116
  16. METHOTREXATE [Concomitant]
     Active Substance: METHOTREXATE
     Dosage: 5 MG
     Dates: start: 20190807
  17. METHOTREXATE [Concomitant]
     Active Substance: METHOTREXATE
     Dosage: 10 MG
     Dates: start: 20200212
  18. METHOTREXATE [Concomitant]
     Active Substance: METHOTREXATE
     Dosage: 15 MG
     Dates: start: 20200811
  19. METHOTREXATE [Concomitant]
     Active Substance: METHOTREXATE
     Dosage: 15 MG
     Dates: start: 20210121
  20. RINVOQ [Concomitant]
     Active Substance: UPADACITINIB
     Indication: Rheumatoid arthritis
     Dosage: 15 MG
     Dates: start: 202011, end: 202208
  21. RINVOQ [Concomitant]
     Active Substance: UPADACITINIB
     Dosage: 15 MG
  22. RINVOQ [Concomitant]
     Active Substance: UPADACITINIB
     Dosage: 15 MG
     Dates: start: 202210, end: 202307
  23. RINVOQ [Concomitant]
     Active Substance: UPADACITINIB
     Dosage: 15 MG
     Dates: start: 202308
  24. RINVOQ [Concomitant]
     Active Substance: UPADACITINIB
     Dosage: 15 MG
  25. OLUMIANT [Concomitant]
     Active Substance: BARICITINIB
     Indication: Rheumatoid arthritis
     Dosage: 4 MG
     Dates: start: 201711
  26. OLUMIANT [Concomitant]
     Active Substance: BARICITINIB
     Dosage: 4 MG
     Dates: end: 201807

REACTIONS (18)
  - Fibromyalgia [Unknown]
  - Pneumonia [Unknown]
  - COVID-19 [Unknown]
  - Arthralgia [Unknown]
  - Immunodeficiency common variable [Unknown]
  - Tibia fracture [Recovered/Resolved]
  - Hiatus hernia [Unknown]
  - Nasopharyngitis [Recovered/Resolved]
  - Urinary tract infection [Not Recovered/Not Resolved]
  - Diarrhoea [Recovered/Resolved]
  - Immune system disorder [Not Recovered/Not Resolved]
  - Sinusitis [Recovered/Resolved]
  - Transaminases increased [Recovered/Resolved]
  - Escherichia infection [Unknown]
  - Vulvovaginal inflammation [Recovered/Resolved]
  - Bronchitis [Recovered/Resolved]
  - Thrombocytosis [Unknown]
  - Underdose [Unknown]

NARRATIVE: CASE EVENT DATE: 20181206
